FAERS Safety Report 8866284 (Version 1)
Quarter: 2012Q4

REPORT INFORMATION
  Report Type: Report from Study
  Country: JP (occurrence: JP)
  Receive Date: 20121025
  Receipt Date: 20121025
  Transmission Date: 20130627
  Serious: Yes (Other)
  Sender: FDA-Public Use
  Company Number: JP-009507513-1210JPN010731

PATIENT
  Age: 68 Year
  Sex: Female
  Weight: 45 kg

DRUGS (13)
  1. REBETOL [Suspect]
     Indication: HEPATITIS C
     Dosage: 600 mg, qd
     Route: 048
     Dates: start: 20120703, end: 20120719
  2. REBETOL [Suspect]
     Dosage: 400 mg, qd
     Route: 048
     Dates: start: 20120720, end: 20120807
  3. REBETOL [Suspect]
     Dosage: 200 mg, qd
     Route: 048
     Dates: start: 20120808, end: 20120814
  4. REBETOL [Suspect]
     Dosage: UNK, qd
     Route: 048
     Dates: start: 20120815
  5. PEGINTRON [Suspect]
     Indication: HEPATITIS C
     Dosage: UNK
     Route: 058
     Dates: start: 20120703
  6. TELAVIC [Suspect]
     Indication: HEPATITIS C
     Dosage: 1500 mg, qd
     Route: 048
     Dates: start: 20120703, end: 20120814
  7. TELAVIC [Suspect]
     Dosage: UNK, qd
     Route: 048
     Dates: start: 20120815
  8. CLARITIN [Concomitant]
     Indication: SKIN DISORDER
     Dosage: 10 mg, qd
     Route: 048
     Dates: start: 20120705
  9. DERMOVATE [Concomitant]
     Indication: SKIN DISORDER
     Dosage: UNK, qd
     Route: 051
     Dates: start: 20120705
  10. ZETIA [Concomitant]
     Indication: HEPATITIS C
     Dosage: 10 mg, qd
     Route: 048
     Dates: start: 20120731
  11. LOCOID [Concomitant]
     Indication: SKIN DISORDER
     Dosage: UNK, qd
     Route: 051
     Dates: start: 20120803
  12. EPADEL [Concomitant]
     Indication: HEPATITIS C
     Dosage: 1800 mg, qd
     Route: 048
     Dates: start: 20120814
  13. TAKEPRON [Concomitant]
     Indication: ABDOMINAL PAIN UPPER
     Dosage: 30 mg, qd
     Route: 048
     Dates: start: 20120831

REACTIONS (3)
  - Rash [Recovered/Resolved]
  - Anaemia [Not Recovered/Not Resolved]
  - Anaemia [Not Recovered/Not Resolved]
